FAERS Safety Report 6141048-9 (Version None)
Quarter: 2009Q2

REPORT INFORMATION
  Report Type: 
  Country: None (occurrence: None)
  Receive Date: 20090402
  Receipt Date: 20090326
  Transmission Date: 20091009
  Serious: Yes (Other)
  Sender: FDA-Public Use
  Company Number: CA-BRISTOL-MYERS SQUIBB COMPANY-14566624

PATIENT
  Sex: Male

DRUGS (1)
  1. DESYREL [Suspect]

REACTIONS (1)
  - BENIGN PROSTATIC HYPERPLASIA [None]
